FAERS Safety Report 12854061 (Version 1)
Quarter: 2016Q4

REPORT INFORMATION
  Report Type: Spontaneous
  Country: JP (occurrence: JP)
  Receive Date: 20161017
  Receipt Date: 20161017
  Transmission Date: 20170207
  Serious: Yes (Hospitalization)
  Sender: FDA-Public Use
  Company Number: JP-UCBSA-2016029181

PATIENT
  Age: 48 Year
  Sex: Male

DRUGS (7)
  1. EPADEL [Concomitant]
     Active Substance: ICOSAPENT
     Indication: PRODUCT USED FOR UNKNOWN INDICATION
     Dosage: 200 MG, 3X/DAY (TID)
     Route: 048
  2. DEPAKENE [Concomitant]
     Active Substance: VALPROIC ACID
     Indication: PRODUCT USED FOR UNKNOWN INDICATION
     Dosage: 200 MG, 3X/DAY (TID)
     Route: 048
     Dates: start: 20100518
  3. EXCEGRAN [Concomitant]
     Active Substance: ZONISAMIDE
     Indication: PRODUCT USED FOR UNKNOWN INDICATION
     Dosage: 200 MG DAILY
     Route: 048
     Dates: start: 20100518
  4. DOGMATYL [Concomitant]
     Active Substance: SULPIRIDE
     Indication: GENERALISED TONIC-CLONIC SEIZURE
     Dosage: 50 MG, 2X/DAY (BID)
     Route: 048
  5. E KEPPRA [Suspect]
     Active Substance: LEVETIRACETAM
     Indication: EPILEPSY
     Dosage: 500 MG DAILY
     Route: 048
     Dates: start: 20110201, end: 20110315
  6. TEGRETOL [Concomitant]
     Active Substance: CARBAMAZEPINE
     Indication: EPILEPSY
     Dosage: 400 MG, ONCE DAILY (QD)
     Route: 048
     Dates: start: 20100518, end: 2011
  7. ALEVIATIN [Concomitant]
     Active Substance: PHENYTOIN SODIUM
     Indication: PRODUCT USED FOR UNKNOWN INDICATION
     Dosage: 200 MG DAILY
     Route: 048
     Dates: start: 20100518

REACTIONS (1)
  - Generalised tonic-clonic seizure [Recovering/Resolving]

NARRATIVE: CASE EVENT DATE: 20110226
